FAERS Safety Report 7012159-0 (Version None)
Quarter: 2010Q3

REPORT INFORMATION
  Report Type: 
  Country: None (occurrence: None)
  Receive Date: 20100924
  Receipt Date: 20100817
  Transmission Date: 20110219
  Serious: No
  Sender: FDA-Public Use
  Company Number: US-TYCO HEALTHCARE/MALLINCKRODT-T201001618

PATIENT
  Age: 80 Year
  Sex: Female

DRUGS (2)
  1. TECHNETIUM TC 99M SESTAMIBI [Suspect]
     Dosage: UNK
     Dates: start: 20100709, end: 20100709
  2. ULTRA-TECHNEKOW [Concomitant]
     Dosage: 25 MCI, SINGLE
     Dates: start: 20100709, end: 20100709

REACTIONS (1)
  - DRUG INEFFECTIVE [None]
